FAERS Safety Report 5234909-6 (Version None)
Quarter: 2007Q1

REPORT INFORMATION
  Report Type: 
  Country: None (occurrence: None)
  Receive Date: 20070209
  Receipt Date: 20070126
  Transmission Date: 20070707
  Serious: Yes (Hospitalization)
  Sender: FDA-Public Use
  Company Number: GBWYE403129JAN07

PATIENT
  Sex: Female
  Weight: 52 kg

DRUGS (8)
  1. ETANERCEPT [Suspect]
     Indication: RHEUMATOID ARTHRITIS
     Route: 058
     Dates: start: 20031215, end: 20061221
  2. AMLODIPINE [Concomitant]
     Dosage: UNKNOWN
  3. TRAMADOL HCL [Concomitant]
     Dosage: UNKNOWN
  4. ACETAMINOPHEN AND CODEINE PHOSPHATE [Concomitant]
     Dosage: UNKNOWN
  5. FOLIC ACID [Concomitant]
     Dosage: UNKNOWN
  6. LANSOPRAZOLE [Concomitant]
     Dosage: UNKNOWN
  7. METHOTREXATE [Concomitant]
     Dosage: UNKNOWN
  8. CELEBREX [Concomitant]
     Dosage: UNKNOWN

REACTIONS (1)
  - MACROCYTOSIS [None]
